FAERS Safety Report 21884625 (Version 11)
Quarter: 2023Q4

REPORT INFORMATION
  Report Type: Spontaneous
  Country: US (occurrence: US)
  Receive Date: 20230119
  Receipt Date: 20231115
  Transmission Date: 20240109
  Serious: No
  Sender: FDA-Public Use
  Company Number: US-PFIZER INC-PV202200102192

PATIENT
  Age: 82 Year
  Sex: Male

DRUGS (3)
  1. RETACRIT [Suspect]
     Active Substance: EPOETIN ALFA-EPBX
     Dosage: 10000 IU (MONDAY, WEDNESDAY, FRIDAY/ THREE TIMES A WEEK FOR 30 DAYS)
  2. RETACRIT [Suspect]
     Active Substance: EPOETIN ALFA-EPBX
     Dosage: 20000 IU (INJECT 1 ML (20,000 UNITS) THREE TIMES A WEEK FOR 30 DAY)
     Route: 042
  3. RETACRIT [Suspect]
     Active Substance: EPOETIN ALFA-EPBX
     Dosage: 10000 IU (INJECT 1 ML (10,000 UNITS) INTO THE VEIN THREE TIMES A WEEK )
     Route: 042

REACTIONS (2)
  - Laboratory test abnormal [Unknown]
  - Haemoglobin decreased [Unknown]
